FAERS Safety Report 16690191 (Version 1)
Quarter: 2019Q3

REPORT INFORMATION
  Report Type: Spontaneous
  Country: US (occurrence: US)
  Receive Date: 20190809
  Receipt Date: 20190809
  Transmission Date: 20191004
  Serious: Yes (Other)
  Sender: FDA-Public Use
  Company Number: US-ALLERGAN-1932641US

PATIENT
  Sex: Female

DRUGS (2)
  1. ESTROGEN NOS [Suspect]
     Active Substance: ESTROGENS
     Indication: HORMONE REPLACEMENT THERAPY
     Route: 065
  2. PROGESTERONE UNK [Suspect]
     Active Substance: PROGESTERONE
     Indication: HORMONE REPLACEMENT THERAPY
     Route: 065

REACTIONS (5)
  - Punctate keratitis [Unknown]
  - Eye opacity [Unknown]
  - Off label use [Unknown]
  - Conjunctivitis allergic [Unknown]
  - Keratoconus [Unknown]
